FAERS Safety Report 6640364-1 (Version None)
Quarter: 2010Q1

REPORT INFORMATION
  Report Type: 
  Country: None (occurrence: None)
  Receive Date: 20100303
  Receipt Date: 20090122
  Transmission Date: 20100710
  Serious: Yes (Other)
  Sender: FDA-Public Use
  Company Number: 600316

PATIENT
  Age: 65 Year
  Sex: Female
  Weight: 64.4 kg

DRUGS (6)
  1. BONIVA [Suspect]
     Indication: OSTEOPOROSIS
     Dosage: 3 MG INTRAVENOUS
     Route: 042
     Dates: start: 20080711, end: 20081113
  2. ASPIRIN [Concomitant]
  3. ADVAIR DISKUS 100/50 [Concomitant]
  4. ALPRAZOLAM [Concomitant]
  5. CRESTOR [Concomitant]
  6. PREDNISONE TAB [Concomitant]

REACTIONS (4)
  - INJECTION SITE INDURATION [None]
  - INJECTION SITE PAIN [None]
  - INJECTION SITE SWELLING [None]
  - PROCEDURAL COMPLICATION [None]
